FAERS Safety Report 9737385 (Version 1)
Quarter: 2013Q4

REPORT INFORMATION
  Report Type: Spontaneous
  Country: US (occurrence: US)
  Receive Date: 20131206
  Receipt Date: 20131206
  Transmission Date: 20140711
  Serious: No
  Sender: FDA-Public Use
  Company Number: US-BIOGENIDEC-2013BI098813

PATIENT
  Age: 53 Year
  Sex: Female

DRUGS (15)
  1. TECFIDERA [Suspect]
     Indication: MULTIPLE SCLEROSIS
     Route: 048
     Dates: start: 20130926, end: 201310
  2. TECFIDERA [Suspect]
     Indication: RELAPSING-REMITTING MULTIPLE SCLEROSIS
     Route: 048
     Dates: start: 20130926, end: 201310
  3. TECFIDERA [Suspect]
     Indication: MULTIPLE SCLEROSIS
     Route: 048
     Dates: start: 201310, end: 20131017
  4. TECFIDERA [Suspect]
     Indication: RELAPSING-REMITTING MULTIPLE SCLEROSIS
     Route: 048
     Dates: start: 201310, end: 20131017
  5. CILOSTAZOL [Concomitant]
  6. CYANOCOBALAMIN [Concomitant]
  7. CYMBALTA [Concomitant]
  8. DIPHENOXYLATE-ATROPINE [Concomitant]
  9. FUROSEMIDE [Concomitant]
  10. MIRTAZAPINE [Concomitant]
  11. MORPHINE SULFATE ER [Concomitant]
  12. MULTI FOR HER [Concomitant]
  13. NEURO K-350 TD [Concomitant]
  14. POLY HIST FORTE [Concomitant]
  15. POTASSIUM CITRATE ER [Concomitant]

REACTIONS (4)
  - Dyspnoea [Recovered/Resolved]
  - Urticaria [Recovered/Resolved]
  - Rash [Recovered/Resolved]
  - Pruritus [Recovered/Resolved]
